FAERS Safety Report 25040083 (Version 2)
Quarter: 2025Q1

REPORT INFORMATION
  Report Type: Spontaneous
  Country: KW (occurrence: KW)
  Receive Date: 20250305
  Receipt Date: 20250328
  Transmission Date: 20250409
  Serious: Yes (Hospitalization)
  Sender: ULTRAGENYX PHARMACEUTICAL
  Company Number: KW-ULTRAGENYX PHARMACEUTICAL INC.-KW-UGX-25-00407

PATIENT
  Age: 10 Year
  Sex: Male
  Weight: 42 kg

DRUGS (3)
  1. DOJOLVI [Suspect]
     Active Substance: TRIHEPTANOIN
     Indication: Long-chain acyl-coenzyme A dehydrogenase deficiency
     Dosage: 15 MILLILITER, QID (DIVIDED INTO 15 ML FOUR TIMES)
     Route: 048
     Dates: start: 20240814, end: 202502
  2. ZYRTEC [Concomitant]
     Active Substance: CETIRIZINE HYDROCHLORIDE
     Indication: Hypersensitivity
  3. ENALAPRIL [Concomitant]
     Active Substance: ENALAPRIL
     Indication: Cardiomyopathy

REACTIONS (5)
  - Metabolic disorder [Recovered/Resolved]
  - Metabolic disorder [Recovered/Resolved]
  - Vomiting [Recovered/Resolved]
  - Diarrhoea [Recovered/Resolved]
  - Dehydration [Unknown]

NARRATIVE: CASE EVENT DATE: 20240913
